FAERS Safety Report 17883758 (Version 1)
Quarter: 2020Q2

REPORT INFORMATION
  Report Type: Report from Study
  Country: DE (occurrence: DE)
  Receive Date: 20200611
  Receipt Date: 20200611
  Transmission Date: 20200714
  Serious: Yes (Life-Threatening, Hospitalization)
  Sender: FDA-Public Use
  Company Number: DE-ASTRAZENECA-2020SE68071

PATIENT

DRUGS (1)
  1. QUETIAPINE. [Suspect]
     Active Substance: QUETIAPINE
     Route: 048

REACTIONS (4)
  - Suicide attempt [Unknown]
  - Seizure [Unknown]
  - Overdose [Unknown]
  - Toxicity to various agents [Unknown]
